FAERS Safety Report 11792062 (Version 3)
Quarter: 2016Q4

REPORT INFORMATION
  Report Type: Spontaneous
  Country: US (occurrence: US)
  Receive Date: 20151201
  Receipt Date: 20161226
  Transmission Date: 20170206
  Serious: Yes (Hospitalization)
  Sender: FDA-Public Use
  Company Number: US-B.I. PHARMACEUTICALS,INC./RIDGEFIELD-2015-BI-66626BI

PATIENT
  Sex: Male
  Weight: 104.33 kg

DRUGS (9)
  1. PRADAXA [Suspect]
     Active Substance: DABIGATRAN ETEXILATE MESYLATE
     Indication: ATRIAL FIBRILLATION
     Route: 065
     Dates: start: 20101216, end: 20121112
  2. DIGOXIN. [Concomitant]
     Active Substance: DIGOXIN
     Indication: PRODUCT USED FOR UNKNOWN INDICATION
     Route: 065
  3. GLIPIZIDE. [Concomitant]
     Active Substance: GLIPIZIDE
     Indication: PRODUCT USED FOR UNKNOWN INDICATION
     Route: 065
  4. POTASSIUM SUPPLEMENT [Concomitant]
     Active Substance: POTASSIUM
     Indication: PRODUCT USED FOR UNKNOWN INDICATION
     Route: 065
  5. LANTUS [Concomitant]
     Active Substance: INSULIN GLARGINE
     Indication: PRODUCT USED FOR UNKNOWN INDICATION
     Dosage: 20 UNITS SUBCU Q.A.M. PER HIS HOME REGIMEN.
     Route: 065
  6. ASPIRIN. [Concomitant]
     Active Substance: ASPIRIN
     Indication: PRODUCT USED FOR UNKNOWN INDICATION
     Route: 065
  7. ATORVASTATIN [Concomitant]
     Active Substance: ATORVASTATIN
     Indication: PRODUCT USED FOR UNKNOWN INDICATION
     Route: 065
  8. CARDIZEM CD [Concomitant]
     Active Substance: DILTIAZEM HYDROCHLORIDE
     Indication: PRODUCT USED FOR UNKNOWN INDICATION
     Route: 065
  9. LASIX [Concomitant]
     Active Substance: FUROSEMIDE
     Indication: PRODUCT USED FOR UNKNOWN INDICATION
     Route: 065

REACTIONS (1)
  - Subarachnoid haemorrhage [Unknown]
